FAERS Safety Report 6241044-7 (Version None)
Quarter: 2009Q2

REPORT INFORMATION
  Report Type: 
  Country: None (occurrence: None)
  Receive Date: 20090619
  Receipt Date: 20090609
  Transmission Date: 20091009
  Serious: Yes (Disabling)
  Sender: FDA-Public Use
  Company Number: GXKR2009US06685

PATIENT
  Age: 26 Year
  Sex: Female

DRUGS (4)
  1. PROMETHAZINE [Suspect]
     Dosage: 12.5 MG, ONCE/SINGLE, INTRA-ARTERIAL
     Route: 013
  2. MEPERIDINE HCL [Concomitant]
  3. ANALGESICS (NO INGREDIENTS/SUBSTANCES) [Concomitant]
  4. SODIUM CHLORIDE [Concomitant]

REACTIONS (11)
  - ARTERIAL OCCLUSIVE DISEASE [None]
  - CYANOSIS [None]
  - DRUG ADMINISTRATION ERROR [None]
  - FINGER AMPUTATION [None]
  - NECROSIS [None]
  - OEDEMA PERIPHERAL [None]
  - PAIN IN EXTREMITY [None]
  - PERIPHERAL ISCHAEMIA [None]
  - SKIN DISCOLOURATION [None]
  - TEMPERATURE INTOLERANCE [None]
  - VASOSPASM [None]
